FAERS Safety Report 9055167 (Version 1)
Quarter: 2013Q1

REPORT INFORMATION
  Report Type: Spontaneous
  Country: DK (occurrence: DK)
  Receive Date: 20130206
  Receipt Date: 20130206
  Transmission Date: 20140127
  Serious: Yes (Other)
  Sender: FDA-Public Use
  Company Number: DK-JNJFOC-20130109959

PATIENT
  Sex: 0

DRUGS (15)
  1. FENTANYL CITRATE [Suspect]
     Indication: PROCEDURAL PAIN
     Route: 042
  2. FENTANYL CITRATE [Suspect]
     Indication: PROCEDURAL PAIN
     Dosage: 100- 500 UG/HR
     Route: 042
  3. IBUPROFEN [Suspect]
     Route: 048
  4. IBUPROFEN [Suspect]
     Indication: PREMEDICATION
     Route: 048
  5. PARACETAMOL [Suspect]
     Route: 048
  6. PARACETAMOL [Suspect]
     Indication: PREMEDICATION
     Route: 048
  7. CODEINE [Suspect]
     Indication: PREMEDICATION
     Route: 048
  8. PROPOFOL [Suspect]
     Indication: ANAESTHESIA
     Dosage: 2-3 MG/KG
     Route: 065
  9. PROPOFOL [Suspect]
     Indication: ANAESTHESIA
     Dosage: 3 MG/KG/HR
     Route: 065
  10. REMIFENTANIL [Suspect]
     Indication: ANAESTHESIA
     Route: 065
  11. KETOROLAC [Suspect]
     Indication: PRODUCT USED FOR UNKNOWN INDICATION
     Route: 042
  12. DEXAMETHASONE [Suspect]
     Indication: PRODUCT USED FOR UNKNOWN INDICATION
     Route: 042
  13. ONDANSETRON [Suspect]
     Indication: PROPHYLAXIS OF NAUSEA AND VOMITING
     Route: 042
  14. BUPIVACAINE [Suspect]
     Indication: PRODUCT USED FOR UNKNOWN INDICATION
     Route: 065
  15. BUPIVACAINE [Suspect]
     Indication: PRODUCT USED FOR UNKNOWN INDICATION
     Route: 065

REACTIONS (1)
  - Haemorrhage [Unknown]
